FAERS Safety Report 9848205 (Version 2)
Quarter: 2014Q1

REPORT INFORMATION
  Report Type: Spontaneous
  Country: US (occurrence: US)
  Receive Date: 20140128
  Receipt Date: 20140303
  Transmission Date: 20141002
  Serious: No
  Sender: FDA-Public Use
  Company Number: US-PFIZER INC-2014021374

PATIENT
  Age: 71 Year
  Sex: Female
  Weight: 49.89 kg

DRUGS (2)
  1. NEURONTIN [Suspect]
     Indication: NEUROPATHY PERIPHERAL
     Dosage: UNK
  2. XALATAN [Suspect]
     Dosage: UNK

REACTIONS (1)
  - Laceration [Unknown]
